FAERS Safety Report 13187603 (Version 2)
Quarter: 2019Q2

REPORT INFORMATION
  Report Type: Spontaneous
  Country: US (occurrence: US)
  Receive Date: 20170206
  Receipt Date: 20190520
  Transmission Date: 20190711
  Serious: No
  Sender: FDA-Public Use
  Company Number: US-PFIZER INC-2017047457

PATIENT
  Age: 71 Year
  Sex: Male

DRUGS (2)
  1. RONDEC [Suspect]
     Active Substance: CARBINOXAMINE MALEATE\PHENYLEPHRINE HYDROCHLORIDE
     Dosage: UNK
  2. LEVOFLOXACIN. [Suspect]
     Active Substance: LEVOFLOXACIN
     Dosage: UNK

REACTIONS (1)
  - Drug hypersensitivity [Unknown]
